FAERS Safety Report 4856441-1 (Version None)
Quarter: 2005Q4

REPORT INFORMATION
  Report Type: 
  Country: None (occurrence: None)
  Receive Date: 20051219
  Receipt Date: 20050217
  Transmission Date: 20060501
  Serious: No
  Sender: FDA-Public Use
  Company Number: US-GLAXOSMITHKLINE-A0546197A

PATIENT
  Age: 65 Year
  Sex: Female

DRUGS (2)
  1. NICODERM CQ [Suspect]
  2. NICODERM CQ [Suspect]

REACTIONS (7)
  - ABNORMAL DREAMS [None]
  - APPLICATION SITE ERYTHEMA [None]
  - APPLICATION SITE PAIN [None]
  - APPLICATION SITE PRURITUS [None]
  - PAIN OF SKIN [None]
  - RESTLESSNESS [None]
  - SKIN WARM [None]
